FAERS Safety Report 21236021 (Version 11)
Quarter: 2023Q1

REPORT INFORMATION
  Report Type: Report from Study
  Country: TR (occurrence: None)
  Receive Date: 20220822
  Receipt Date: 20230329
  Transmission Date: 20230418
  Serious: Yes (Hospitalization)
  Sender: FDA-Public Use
  Company Number: TR-ROCHE-3156619

PATIENT
  Age: 62 Year
  Sex: Male
  Weight: 62 kg

DRUGS (23)
  1. TIRAGOLUMAB [Suspect]
     Active Substance: TIRAGOLUMAB
     Indication: Lung neoplasm malignant
     Dosage: START DATE OF MOST RECENT DOSE OF STUDY DRUG PRIOR TO AE AND SAE: 04-AUG-2022 (840 MG)
     Route: 042
     Dates: start: 20220804
  2. ATEZOLIZUMAB [Suspect]
     Active Substance: ATEZOLIZUMAB
     Indication: Lung neoplasm malignant
     Dosage: START DATE OF MOST RECENT DOSE OF STUDY DRUG PRIOR TO AE AND SAE: 04-AUG-2022 (1680 MG)
     Route: 041
     Dates: start: 20220804
  3. PHENIRAMINE [Concomitant]
     Active Substance: PHENIRAMINE
     Route: 042
     Dates: start: 20220805
  4. COMBIVENT [Concomitant]
     Active Substance: ALBUTEROL SULFATE\IPRATROPIUM BROMIDE
     Route: 055
     Dates: start: 20220805, end: 20220805
  5. ENOXAPARIN SODIUM [Concomitant]
     Active Substance: ENOXAPARIN SODIUM
     Route: 048
     Dates: start: 20220805
  6. IPRATOM [Concomitant]
     Route: 055
     Dates: start: 20220806
  7. PULMICORT TURBUHALER [Concomitant]
     Active Substance: BUDESONIDE
     Indication: Prophylaxis
     Route: 055
     Dates: start: 20220806
  8. PROGAS [Concomitant]
     Route: 042
     Dates: start: 20220806
  9. DEXKETOPROFEN [Concomitant]
     Active Substance: DEXKETOPROFEN
     Indication: Chest pain
     Route: 042
     Dates: start: 20220806
  10. DEXKETOPROFEN [Concomitant]
     Active Substance: DEXKETOPROFEN
     Route: 048
     Dates: start: 20220915
  11. MEROSID [Concomitant]
     Route: 042
     Dates: start: 20220805
  12. MAGNESIE CALCINEE [Concomitant]
     Route: 042
     Dates: start: 20220805
  13. PAROL [Concomitant]
     Active Substance: ACETAMINOPHEN
     Route: 042
     Dates: start: 20220805
  14. DUPHALAC [Concomitant]
     Active Substance: LACTULOSE
     Route: 048
     Dates: start: 20220805
  15. METOCLOPRAMIDE [Concomitant]
     Active Substance: METOCLOPRAMIDE
     Route: 042
     Dates: start: 20220805
  16. METICURE [Concomitant]
     Route: 055
     Dates: start: 20220806
  17. CERNEVIT [Concomitant]
     Active Substance: VITAMINS
     Indication: Prophylaxis
     Route: 042
     Dates: start: 20220805
  18. MAGNESIUM SULFATE [Concomitant]
     Active Substance: MAGNESIUM SULFATE
     Indication: Prophylaxis
     Route: 042
     Dates: start: 20220807
  19. KYTRIL [Concomitant]
     Active Substance: GRANISETRON HYDROCHLORIDE
     Dosage: PRN
     Route: 042
     Dates: start: 20220805
  20. PACLITAXEL [Concomitant]
     Active Substance: PACLITAXEL
     Dates: start: 20220614, end: 20220713
  21. CARBOPLATIN [Concomitant]
     Active Substance: CARBOPLATIN
     Dates: start: 20220614, end: 20220713
  22. PROPRANOLOL HYDROCHLORIDE [Concomitant]
     Active Substance: PROPRANOLOL HYDROCHLORIDE
     Indication: Hyperthyroidism
     Route: 048
     Dates: start: 20220816, end: 20220818
  23. HUMAN RED BLOOD CELL [Concomitant]
     Active Substance: HUMAN RED BLOOD CELL
     Indication: Anaemia
     Dates: start: 20220805, end: 20220805

REACTIONS (2)
  - Infusion related reaction [Recovered/Resolved]
  - Infusion related reaction [Recovering/Resolving]

NARRATIVE: CASE EVENT DATE: 20220805
